FAERS Safety Report 11474935 (Version 1)
Quarter: 2015Q3

REPORT INFORMATION
  Report Type: Spontaneous
  Country: US (occurrence: None)
  Receive Date: 20150908
  Receipt Date: 20150908
  Transmission Date: 20151125
  Serious: No
  Sender: FDA-Public Use
  Company Number: None

PATIENT
  Age: 62 Year
  Sex: Female
  Weight: 114.76 kg

DRUGS (13)
  1. CRANBERRY. [Concomitant]
     Active Substance: CRANBERRY
  2. PRADAXA [Suspect]
     Active Substance: DABIGATRAN ETEXILATE MESYLATE
     Indication: ANTICOAGULANT THERAPY
     Dosage: 1 PILL BID ORAL
     Route: 048
     Dates: start: 20141229, end: 20150131
  3. VITAMIN B COMPLEX [Concomitant]
     Active Substance: CYANOCOBALAMIN\DEXPANTHENOL\NIACINAMIDE\PYRIDOXINE HYDROCHLORIDE\RIBOFLAVIN 5^-PHOSPHATE SODIUM\THIAMINE HYDROCHLORIDE\VITAMIN B COMPLEX
  4. BIOTIN [Concomitant]
     Active Substance: BIOTIN
  5. FISH OIL [Suspect]
     Active Substance: FISH OIL
  6. PRAVASTATIN [Concomitant]
     Active Substance: PRAVASTATIN\PRAVASTATIN SODIUM
  7. CYCLOBENZAPRINE [Concomitant]
     Active Substance: CYCLOBENZAPRINE
  8. LISINOPRIL. [Concomitant]
     Active Substance: LISINOPRIL
  9. OSTEO BI-FLEX [Concomitant]
     Active Substance: CHONDROITIN SULFATE A\GLUCOSAMINE
  10. METOPROLOL TARTRATE. [Concomitant]
     Active Substance: METOPROLOL TARTRATE
  11. MULTIVITAMIN [Concomitant]
     Active Substance: VITAMINS
  12. LIDODERM 5 [Concomitant]
     Active Substance: LIDOCAINE
  13. FLECAINIDE [Concomitant]
     Active Substance: FLECAINIDE

REACTIONS (2)
  - Tongue blistering [None]
  - Swollen tongue [None]

NARRATIVE: CASE EVENT DATE: 20150131
